FAERS Safety Report 8900557 (Version 2)
Quarter: 2013Q1

REPORT INFORMATION
  Report Type: Other
  Country: JP (occurrence: JP)
  Receive Date: 20121109
  Receipt Date: 20130226
  Transmission Date: 20140127
  Serious: Yes (Hospitalization)
  Sender: FDA-Public Use
  Company Number: JP-NAPPMUNDI-DEU-2012-0009787

PATIENT
  Age: 76 Year
  Sex: Male

DRUGS (5)
  1. OXYCODONE HCL PR TABLET 10 MG [Suspect]
     Indication: PAIN
     Dosage: 10 MG, DAILY
     Route: 048
  2. PROCHLORPERAZINE [Suspect]
     Indication: PAIN
     Dosage: 15 MG, DAILY
     Route: 048
  3. LEVODOPA/CARBIDOPA [Concomitant]
     Dosage: 450 MG, DAILY
     Route: 048
  4. ROPINIROLE HYDROCHLORIDE [Concomitant]
     Dosage: 5 MG, DAILY
     Route: 048
  5. SELEGILINE HYDROCHLORIDE [Concomitant]
     Dosage: 2.5 MG, DAILY
     Route: 048

REACTIONS (3)
  - Parkinson^s disease [Recovered/Resolved]
  - Drug interaction [Recovered/Resolved]
  - Somnolence [None]
